FAERS Safety Report 24411054 (Version 1)
Quarter: 2024Q4

REPORT INFORMATION
  Report Type: Spontaneous
  Country: ID (occurrence: ID)
  Receive Date: 20241008
  Receipt Date: 20241008
  Transmission Date: 20250114
  Serious: Yes (Other)
  Sender: BAYER
  Company Number: ID-BAYER-2024A139206

PATIENT
  Sex: Male

DRUGS (1)
  1. FINERENONE [Suspect]
     Active Substance: FINERENONE
     Indication: Chronic kidney disease
     Dosage: 10 MG

REACTIONS (2)
  - Urine albumin/creatinine ratio decreased [None]
  - Off label use [None]

NARRATIVE: CASE EVENT DATE: 20240501
